FAERS Safety Report 5809710-2 (Version None)
Quarter: 2008Q3

REPORT INFORMATION
  Report Type: 
  Country: None (occurrence: None)
  Receive Date: 20080711
  Receipt Date: 20080711
  Transmission Date: 20090109
  Serious: Yes (Disabling)
  Sender: FDA-Public Use
  Company Number: None

PATIENT
  Sex: Male

DRUGS (1)
  1. MARCAINE HYDROCHLORIDE W/ EPINEPHRINE [Suspect]
     Dosage: 280 ML FLOW RATE 2X2 ML 014

REACTIONS (3)
  - CHONDROMALACIA [None]
  - CHONDROPATHY [None]
  - NUCLEAR MAGNETIC RESONANCE IMAGING ABNORMAL [None]
